FAERS Safety Report 19385204 (Version 2)
Quarter: 2021Q3

REPORT INFORMATION
  Report Type: Spontaneous
  Country: JP (occurrence: JP)
  Receive Date: 20210608
  Receipt Date: 20210714
  Transmission Date: 20211014
  Serious: Yes (Other)
  Sender: FDA-Public Use
  Company Number: NVSJ2021JP008314

PATIENT
  Sex: Male
  Weight: 59 kg

DRUGS (1)
  1. ENTRESTO [Suspect]
     Active Substance: SACUBITRIL\VALSARTAN
     Indication: CARDIAC FAILURE CHRONIC
     Dosage: UNK
     Route: 048

REACTIONS (3)
  - Pyrexia [Unknown]
  - Cholecystitis [Unknown]
  - Blood pressure systolic decreased [Unknown]
